FAERS Safety Report 9706148 (Version 2)
Quarter: 2013Q4

REPORT INFORMATION
  Report Type: Spontaneous
  Country: US (occurrence: US)
  Receive Date: 20131124
  Receipt Date: 20131124
  Transmission Date: 20140711
  Serious: Yes (Other)
  Sender: FDA-Public Use
  Company Number: US-SANOFI-AVENTIS-2012SA089458

PATIENT
  Sex: Male

DRUGS (2)
  1. PLAVIX [Suspect]
     Indication: PROPHYLAXIS
     Route: 048
     Dates: start: 20100930, end: 20111224
  2. ASPIRIN [Suspect]
     Route: 065

REACTIONS (1)
  - Gastrointestinal haemorrhage [Unknown]
